FAERS Safety Report 11929789 (Version 1)
Quarter: 2016Q1

REPORT INFORMATION
  Report Type: Spontaneous
  Country: US (occurrence: None)
  Receive Date: 20160119
  Receipt Date: 20160119
  Transmission Date: 20160526
  Serious: Yes (Life-Threatening, Hospitalization)
  Sender: FDA-Public Use
  Company Number: None

PATIENT
  Age: 76 Year
  Sex: Male
  Weight: 104.33 kg

DRUGS (1)
  1. 5FU [Suspect]
     Active Substance: FLUOROURACIL
     Indication: COLON CANCER STAGE III
     Dosage: FALFOX EVERY 2 WEEKS PORT
     Dates: start: 20151214, end: 20151216

REACTIONS (2)
  - Cardiac failure congestive [None]
  - Myocardial infarction [None]

NARRATIVE: CASE EVENT DATE: 20151216
